FAERS Safety Report 25971092 (Version 1)
Quarter: 2025Q4

REPORT INFORMATION
  Report Type: Report from Study
  Country: US (occurrence: US)
  Receive Date: 20251028
  Receipt Date: 20251028
  Transmission Date: 20260117
  Serious: Yes (Other)
  Sender: JAZZ
  Company Number: US-JAZZ PHARMACEUTICALS-2025-US-023021

PATIENT
  Age: 57 Year
  Sex: Female

DRUGS (6)
  1. XYWAV [Suspect]
     Active Substance: CALCIUM OXYBATE\MAGNESIUM OXYBATE\POTASSIUM OXYBATE\SODIUM OXYBATE
     Indication: Hypersomnia
     Dosage: 2.25 GRAM, BID
     Dates: start: 20250926
  2. XYWAV [Suspect]
     Active Substance: CALCIUM OXYBATE\MAGNESIUM OXYBATE\POTASSIUM OXYBATE\SODIUM OXYBATE
     Dosage: 3.75 GRAM, BID
     Dates: end: 20251019
  3. XYWAV [Suspect]
     Active Substance: CALCIUM OXYBATE\MAGNESIUM OXYBATE\POTASSIUM OXYBATE\SODIUM OXYBATE
     Dosage: UNK
  4. PREDNISONE [Concomitant]
     Active Substance: PREDNISONE
     Indication: Product used for unknown indication
  5. TAGAMET [Concomitant]
     Active Substance: CIMETIDINE
  6. DUPIXENT [Concomitant]
     Active Substance: DUPILUMAB

REACTIONS (16)
  - Anaphylactic reaction [Recovering/Resolving]
  - Restless legs syndrome [Recovering/Resolving]
  - Aphasia [Unknown]
  - Heart rate decreased [Unknown]
  - Paraesthesia oral [Recovered/Resolved with Sequelae]
  - Hypoaesthesia oral [Recovering/Resolving]
  - Emotional disorder [Recovering/Resolving]
  - Altered visual depth perception [Recovering/Resolving]
  - Ocular hyperaemia [Recovering/Resolving]
  - Swelling [Recovering/Resolving]
  - Mental status changes [Recovering/Resolving]
  - Abdominal discomfort [Recovered/Resolved with Sequelae]
  - Headache [Recovered/Resolved with Sequelae]
  - Insomnia [Recovering/Resolving]
  - Muscle spasms [Recovered/Resolved with Sequelae]
  - Product dose omission issue [Unknown]

NARRATIVE: CASE EVENT DATE: 20250928
